FAERS Safety Report 7074719-0 (Version None)
Quarter: 2010Q4

REPORT INFORMATION
  Report Type: 
  Country: None (occurrence: None)
  Receive Date: 20101029
  Receipt Date: 20101020
  Transmission Date: 20110411
  Serious: Yes (Hospitalization, Other)
  Sender: FDA-Public Use
  Company Number: US-AMGEN-USASP2010000890

PATIENT

DRUGS (2)
  1. ENBREL [Suspect]
     Indication: PSORIATIC ARTHROPATHY
     Dates: start: 20090225
  2. PREDNISONE [Concomitant]

REACTIONS (5)
  - BREAST CANCER [None]
  - HOSPITALISATION [None]
  - PAIN [None]
  - SINUSITIS [None]
  - UPPER RESPIRATORY TRACT INFECTION [None]
